FAERS Safety Report 8317356-X (Version None)
Quarter: 2012Q2

REPORT INFORMATION
  Report Type: 
  Country: None (occurrence: None)
  Receive Date: 20120427
  Receipt Date: 20120425
  Transmission Date: 20120825
  Serious: Yes (Death)
  Sender: FDA-Public Use
  Company Number: US-B.I. PHARMACEUTICALS,INC./RIDGEFIELD-2012-BP-06050BP

PATIENT
  Sex: Male
  Weight: 147.87 kg

DRUGS (16)
  1. COREG [Concomitant]
     Indication: HYPERTENSION
     Dosage: 25 MG
     Route: 048
  2. LEVOTHYROXINE SODIUM [Concomitant]
     Indication: HYPOTHYROIDISM
     Route: 048
  3. LISINOPRIL [Concomitant]
     Indication: HYPERTENSION
     Dosage: 20 MG
     Route: 048
  4. AVODART [Concomitant]
     Indication: BENIGN PROSTATIC HYPERPLASIA
  5. JANUVIA [Concomitant]
     Indication: DIABETES MELLITUS
     Dosage: 100 MG
     Route: 048
  6. JANUVIA [Concomitant]
     Indication: BENIGN PROSTATIC HYPERPLASIA
  7. LISINOPRIL [Concomitant]
     Indication: ATRIAL FIBRILLATION
  8. AVODART [Concomitant]
     Indication: DIABETES MELLITUS
     Dosage: 0.5 MG
     Route: 048
  9. DIGOXIN [Concomitant]
     Indication: ATRIAL FIBRILLATION
     Dosage: 0.125 MG
     Route: 048
  10. ISOSORBIDE MONONITRATE [Concomitant]
     Indication: ANGINA PECTORIS
     Dosage: 30 MG
     Route: 048
  11. PRANDIN [Concomitant]
     Indication: DIABETES MELLITUS
     Dosage: 3 MG
     Route: 048
  12. PRANDIN [Concomitant]
     Indication: HYPERTENSION
  13. TRAZODONE HCL [Concomitant]
     Indication: INSOMNIA
     Dosage: 50 MG
     Route: 048
  14. PRADAXA [Suspect]
     Indication: ATRIAL FIBRILLATION
     Dosage: 300 MG
     Route: 048
     Dates: start: 20111013, end: 20120130
  15. LASIX [Concomitant]
     Indication: HYPERTENSION
     Dosage: 20 MG
     Route: 048
  16. SIMVASTATIN [Concomitant]

REACTIONS (1)
  - SUDDEN DEATH [None]
